FAERS Safety Report 9914773 (Version 1)
Quarter: 2014Q1

REPORT INFORMATION
  Report Type: Report from Study
  Country: BR (occurrence: BR)
  Receive Date: 20140220
  Receipt Date: 20140220
  Transmission Date: 20141002
  Serious: Yes (Death, Hospitalization, Other)
  Sender: FDA-Public Use
  Company Number: PHHY2014BR020212

PATIENT
  Age: 89 Year
  Sex: Female
  Weight: 52 kg

DRUGS (5)
  1. ACLASTA [Suspect]
     Indication: OSTEOPOROSIS
     Dosage: 5 MG, UNK
     Route: 042
     Dates: start: 2013
  2. CARVEDILOL [Concomitant]
     Indication: OSTEOPOROSIS
     Dosage: 6 MG, QD, A LOT OF YEARS
     Route: 048
  3. CARVEDILOL [Concomitant]
     Dosage: 12 MG, QD,, SOMETIMES AGO
     Route: 048
     Dates: end: 201309
  4. METFORMIN [Concomitant]
     Indication: DIABETES MELLITUS
     Dosage: 2 DF, QD APPROXIMATELY 5 YEARS AGO
     Route: 048
     Dates: end: 201309
  5. ARADOIS [Concomitant]
     Indication: HYPERTENSION
     Dosage: 1 DF, QD, APPROXIMATELY 10 YEARS AGO
     Route: 048
     Dates: end: 201309

REACTIONS (4)
  - Respiratory failure [Fatal]
  - Pneumonia [Not Recovered/Not Resolved]
  - Back pain [Not Recovered/Not Resolved]
  - Anaemia [Not Recovered/Not Resolved]
